FAERS Safety Report 11503996 (Version 2)
Quarter: 2015Q4

REPORT INFORMATION
  Report Type: Spontaneous
  Country: US (occurrence: US)
  Receive Date: 20150914
  Receipt Date: 20151001
  Transmission Date: 20160304
  Serious: Yes (Death)
  Sender: FDA-Public Use
  Company Number: US-PFIZER INC-2015221834

PATIENT
  Age: 88 Year
  Sex: Female
  Weight: 54.88 kg

DRUGS (8)
  1. INLYTA [Suspect]
     Active Substance: AXITINIB
     Indication: RENAL CANCER
     Dosage: 5 MG, 2X/DAY
     Route: 048
     Dates: start: 20140402, end: 20141126
  2. XGEVA [Concomitant]
     Active Substance: DENOSUMAB
     Dosage: 120 MG, UNK
     Route: 058
     Dates: start: 20150528
  3. TEMAZEPAM. [Concomitant]
     Active Substance: TEMAZEPAM
     Dosage: 7.5 MG, DAILY
     Route: 048
     Dates: start: 20150625
  4. DURAGESIC [Concomitant]
     Active Substance: FENTANYL
     Dosage: 12 ?G, UNK(APPLY EVERY 72 H)
     Dates: start: 20150625
  5. NEXAVAR [Concomitant]
     Active Substance: SORAFENIB
     Dosage: 400 MG, 2X/DAY, ON AN EMPTY STOMACH- 1 HR BEFORE OR 2 HRS AFTER A MEAL
     Dates: start: 20150129
  6. INLYTA [Suspect]
     Active Substance: AXITINIB
     Dosage: UNK
     Route: 048
     Dates: start: 20140326
  7. DILAUDID [Concomitant]
     Active Substance: HYDROMORPHONE HYDROCHLORIDE
     Indication: PAIN
     Dosage: 2 MG, AS NEEDED
     Route: 048
     Dates: start: 20150625
  8. INLYTA [Suspect]
     Active Substance: AXITINIB
     Dosage: 5 MG, 2X/DAY
     Route: 048
     Dates: start: 20150625

REACTIONS (3)
  - Death [Fatal]
  - Disease progression [Unknown]
  - Renal cancer [Unknown]
